FAERS Safety Report 24721009 (Version 1)
Quarter: 2024Q4

REPORT INFORMATION
  Report Type: Spontaneous
  Country: PT (occurrence: PT)
  Receive Date: 20241211
  Receipt Date: 20241211
  Transmission Date: 20250114
  Serious: Yes (Life-Threatening, Hospitalization, Other)
  Sender: CHEPLAPHARM
  Company Number: None

PATIENT
  Age: 82 Year
  Sex: Male

DRUGS (1)
  1. CAPECITABINE [Suspect]
     Active Substance: CAPECITABINE
     Indication: Colorectal adenocarcinoma
     Dosage: 1ST CYCLE,CYCLICAL
     Route: 048

REACTIONS (9)
  - Mucosal inflammation [Unknown]
  - Febrile neutropenia [Recovered/Resolved]
  - Acute kidney injury [Recovered/Resolved]
  - Palmar-plantar erythrodysaesthesia syndrome [Unknown]
  - Hypotension [Unknown]
  - Septic shock [Unknown]
  - Diarrhoea [Unknown]
  - Craniocerebral injury [Unknown]
  - Fall [Unknown]
